FAERS Safety Report 25698688 (Version 1)
Quarter: 2025Q3

REPORT INFORMATION
  Report Type: Spontaneous
  Country: US (occurrence: US)
  Receive Date: 20250819
  Receipt Date: 20250819
  Transmission Date: 20251020
  Serious: No
  Sender: ABBVIE
  Company Number: US-ABBVIE-6419679

PATIENT

DRUGS (4)
  1. SYNTHROID [Suspect]
     Active Substance: LEVOTHYROXINE SODIUM
     Indication: Product used for unknown indication
     Route: 048
  2. IODINE [Concomitant]
     Active Substance: IODINE
     Indication: Product used for unknown indication
  3. SELENIUM [Concomitant]
     Active Substance: SELENIUM
     Indication: Product used for unknown indication
  4. COPPER [Concomitant]
     Active Substance: COPPER
     Indication: Product used for unknown indication

REACTIONS (1)
  - Goitre [Unknown]
